FAERS Safety Report 9476269 (Version 1)
Quarter: 2013Q3

REPORT INFORMATION
  Report Type: Spontaneous
  Country: GB (occurrence: GB)
  Receive Date: 20130826
  Receipt Date: 20130826
  Transmission Date: 20140515
  Serious: Yes (Other)
  Sender: FDA-Public Use
  Company Number: GB-PFIZER INC-2013243334

PATIENT
  Sex: Male

DRUGS (1)
  1. LUSTRAL [Suspect]
     Dosage: 50 MG, UNK

REACTIONS (1)
  - Coeliac disease [Unknown]
